FAERS Safety Report 21523912 (Version 1)
Quarter: 2022Q4

REPORT INFORMATION
  Report Type: Report from Study
  Country: US (occurrence: US)
  Receive Date: 20221029
  Receipt Date: 20221029
  Transmission Date: 20230113
  Serious: No
  Sender: FDA-Public Use
  Company Number: US-ABBVIE-4148253

PATIENT
  Sex: Female

DRUGS (1)
  1. RINVOQ [Suspect]
     Active Substance: UPADACITINIB
     Indication: Rheumatoid arthritis
     Dosage: RINVOQ ER?FIRST ADMINISTRATION DATE - 2022/08?PRODUCT (UPADACITINIB) - FORM STRENGTH: 15 MILLIGRAM
     Route: 048

REACTIONS (1)
  - Nasopharyngitis [Recovered/Resolved]
